FAERS Safety Report 8988205 (Version 2)
Quarter: 2013Q1

REPORT INFORMATION
  Report Type: Report from Study
  Country: NO (occurrence: NO)
  Receive Date: 20121227
  Receipt Date: 20130325
  Transmission Date: 20140127
  Serious: Yes (Other)
  Sender: FDA-Public Use
  Company Number: NO-ROCHE-1174071

PATIENT
  Sex: 0

DRUGS (3)
  1. CAPECITABINE [Suspect]
     Indication: BILIARY CANCER METASTATIC
     Route: 065
  2. GEMCITABINE [Suspect]
     Indication: BILIARY CANCER METASTATIC
     Dosage: DAY 1 AND 8
     Route: 065
  3. TEMOPORFIN [Suspect]
     Indication: BILIARY CANCER METASTATIC
     Route: 065

REACTIONS (3)
  - Neutropenia [Unknown]
  - Cholangitis [Unknown]
  - Liver abscess [Unknown]
